FAERS Safety Report 5633815-2 (Version None)
Quarter: 2008Q1

REPORT INFORMATION
  Report Type: 
  Country: None (occurrence: None)
  Receive Date: 20080131
  Receipt Date: 20071116
  Transmission Date: 20080703
  Serious: No
  Sender: FDA-Public Use
  Company Number: 163-21880-07111011

PATIENT
  Age: 86 Year
  Sex: Female

DRUGS (3)
  1. REVLIMID [Suspect]
     Indication: MYELODYSPLASTIC SYNDROME
     Dosage: 5 MG, 1 IN 1 D, ORAL; X21 DAYS/28 DAYS, ORAL
     Route: 048
     Dates: start: 20070801, end: 20070901
  2. REVLIMID [Suspect]
     Indication: MYELODYSPLASTIC SYNDROME
     Dosage: 5 MG, 1 IN 1 D, ORAL; X21 DAYS/28 DAYS, ORAL
     Route: 048
     Dates: start: 20070901, end: 20071001
  3. REVLIMID [Suspect]
     Indication: MYELODYSPLASTIC SYNDROME
     Dosage: 5 MG, 1 IN 1 D, ORAL; X21 DAYS/28 DAYS, ORAL
     Route: 048
     Dates: start: 20071101

REACTIONS (1)
  - NEOPLASM PROGRESSION [None]
